FAERS Safety Report 10788823 (Version 1)
Quarter: 2015Q1

REPORT INFORMATION
  Report Type: Spontaneous
  Country: US (occurrence: None)
  Receive Date: 20150211
  Receipt Date: 20150211
  Transmission Date: 20150721
  Serious: Yes (Hospitalization, Disabling)
  Sender: FDA-Public Use
  Company Number: None

PATIENT
  Age: 37 Year
  Sex: Female
  Weight: 73.48 kg

DRUGS (3)
  1. TOPIRAMATE. [Suspect]
     Active Substance: TOPIRAMATE
     Indication: MIGRAINE
     Dosage: 2 PILLS
     Route: 048
     Dates: start: 20150108, end: 20150119
  2. BABY ASPIRIN [Concomitant]
     Active Substance: ASPIRIN
  3. LABETOLOL [Concomitant]
     Active Substance: LABETALOL HYDROCHLORIDE

REACTIONS (9)
  - Aphasia [None]
  - Insomnia [None]
  - Dysphagia [None]
  - Cognitive disorder [None]
  - Dysgraphia [None]
  - Speech disorder [None]
  - Constipation [None]
  - Mental impairment [None]
  - Decreased appetite [None]

NARRATIVE: CASE EVENT DATE: 20150120
